FAERS Safety Report 5448096-2 (Version None)
Quarter: 2007Q3

REPORT INFORMATION
  Report Type: 
  Country: None (occurrence: None)
  Receive Date: 20070801
  Receipt Date: 20070523
  Transmission Date: 20080115
  Serious: No
  Sender: FDA-Public Use
  Company Number: 2007-US-000229

PATIENT
  Age: 14 Year
  Sex: Male
  Weight: 38.7 kg

DRUGS (1)
  1. INCRELEX [Suspect]
     Indication: BODY HEIGHT BELOW NORMAL
     Dosage: 120 UG/KG, BID
     Dates: start: 20061201, end: 20070523

REACTIONS (3)
  - HEADACHE [None]
  - PAPILLOEDEMA [None]
  - VOMITING [None]
